FAERS Safety Report 4822265-4 (Version None)
Quarter: 2005Q4

REPORT INFORMATION
  Report Type: 
  Country: None (occurrence: None)
  Receive Date: 20051103
  Receipt Date: 20051017
  Transmission Date: 20060501
  Serious: Yes (Other)
  Sender: FDA-Public Use
  Company Number: USA0510111078

PATIENT
  Age: 70 Year
  Sex: Female

DRUGS (2)
  1. FORTEO (TERIPARATDIE) [Suspect]
     Indication: OSTEOPOROSIS
     Dates: start: 20050401
  2. CALCIUM CITRATE [Concomitant]

REACTIONS (5)
  - ABDOMINAL PAIN [None]
  - BLOOD CALCIUM INCREASED [None]
  - HAEMANGIOMA [None]
  - HEPATIC CYST [None]
  - INJECTION SITE PAIN [None]
